FAERS Safety Report 17659817 (Version 4)
Quarter: 2020Q2

REPORT INFORMATION
  Report Type: Spontaneous
  Country: US (occurrence: US)
  Receive Date: 20200413
  Receipt Date: 20200508
  Transmission Date: 20200713
  Serious: No
  Sender: FDA-Public Use
  Company Number: US-AMGEN-USASP2020059566

PATIENT
  Age: 58 Year
  Sex: Female
  Weight: 69.84 kg

DRUGS (5)
  1. GRANIX [Concomitant]
     Active Substance: TBO-FILGRASTIM
     Indication: NEUTROPENIA
     Dosage: 3 DOSES, QD (DAILY DOSES FOLLOWING CHEMOTHERAPY)
     Route: 065
  2. NEULASTA [Suspect]
     Active Substance: PEGFILGRASTIM
     Indication: NEUTROPENIA
     Dosage: UNK UNK, AFTER CHEMO
     Route: 065
     Dates: start: 2018
  3. GEMZAR [Concomitant]
     Active Substance: GEMCITABINE HYDROCHLORIDE
     Dosage: UNK
     Route: 065
  4. NEULASTA [Suspect]
     Active Substance: PEGFILGRASTIM
     Dosage: UNK UNK, AFTER CHEMO
     Route: 065
  5. NEULASTA [Suspect]
     Active Substance: PEGFILGRASTIM
     Dosage: UNK UNK, AFTER CHEMO
     Route: 065

REACTIONS (3)
  - Fatigue [Recovered/Resolved]
  - Back pain [Recovered/Resolved]
  - Device adhesion issue [Unknown]

NARRATIVE: CASE EVENT DATE: 2018
